FAERS Safety Report 5375661-3 (Version None)
Quarter: 2007Q2

REPORT INFORMATION
  Report Type: 
  Country: None (occurrence: None)
  Receive Date: 20070629
  Receipt Date: 20070618
  Transmission Date: 20071010
  Serious: Yes (Other)
  Sender: FDA-Public Use
  Company Number: US-PFIZER INC-2007052133

PATIENT
  Age: 41 Year
  Sex: Female

DRUGS (3)
  1. GEODON [Suspect]
     Indication: BIPOLAR DISORDER
  2. LAMICTAL [Concomitant]
  3. SEROQUEL [Concomitant]

REACTIONS (6)
  - ANOREXIA [None]
  - DEPRESSION [None]
  - DRUG INEFFECTIVE [None]
  - OBSESSIVE THOUGHTS [None]
  - PARANOIA [None]
  - WEIGHT DECREASED [None]
